FAERS Safety Report 13713124 (Version 1)
Quarter: 2017Q3

REPORT INFORMATION
  Report Type: Spontaneous
  Country: US (occurrence: US)
  Receive Date: 20170704
  Receipt Date: 20170704
  Transmission Date: 20171127
  Serious: Yes (Hospitalization, Other)
  Sender: FDA-Public Use
  Company Number: US-BAXTER-2017BAX026477

PATIENT
  Age: 23 Year
  Sex: Male

DRUGS (107)
  1. UROMITEXAN 400 MG [Suspect]
     Active Substance: MESNA
     Indication: B PRECURSOR TYPE ACUTE LEUKAEMIA
     Dosage: AUGMENTED R-HYPER CVAD PROTOCOL
     Route: 065
     Dates: start: 20160426
  2. UROMITEXAN 400 MG [Suspect]
     Active Substance: MESNA
     Dosage: B1 CYCLE OF AUGMENTED R-HYPER CVAD
     Route: 065
  3. CYCLOPHOSPHAMIDE FOR INJECTION, USP [Suspect]
     Active Substance: CYCLOPHOSPHAMIDE
     Dosage: A1 CYCLE OF AUGMENTED R-HYPER CVAD
     Route: 065
  4. CYCLOPHOSPHAMIDE FOR INJECTION, USP [Suspect]
     Active Substance: CYCLOPHOSPHAMIDE
     Dosage: PRE-TRANSPLANT CONDITIONING, ON DAY 6
     Route: 065
     Dates: start: 2017
  5. ADRIAMYCIN [Suspect]
     Active Substance: DOXORUBICIN HYDROCHLORIDE
     Dosage: 3A CYCLE OF AUGMENTED R-HYPER CVAD
     Route: 065
     Dates: start: 20160822
  6. METHOTREXATE. [Suspect]
     Active Substance: METHOTREXATE
     Dosage: B1 CYCLE OF AUGMENTED R-HYPER CVAD
     Route: 065
  7. METHOTREXATE. [Suspect]
     Active Substance: METHOTREXATE
     Dosage: 4A CYCLE OF AUGMENTED R-HYPER CVAD
     Route: 065
  8. SODIUM BICARBONATE. [Suspect]
     Active Substance: SODIUM BICARBONATE
     Dosage: 3A CYCLE OF AUGMENTED R-HYPER CVAD
     Route: 065
     Dates: start: 20160822
  9. SODIUM BICARBONATE. [Suspect]
     Active Substance: SODIUM BICARBONATE
     Dosage: 4A CYCLE OF AUGMENTED R-HYPER CVAD
     Route: 065
  10. HYDROXYUREA. [Suspect]
     Active Substance: HYDROXYUREA
     Indication: PRODUCT USED FOR UNKNOWN INDICATION
     Route: 065
     Dates: start: 20160426
  11. MYCOPHENOLATE MOFETIL. [Suspect]
     Active Substance: MYCOPHENOLATE MOFETIL
     Indication: B PRECURSOR TYPE ACUTE LEUKAEMIA
     Dosage: PRE-TRANSPLANT CONDITIONING ON DAY THREE
     Route: 065
     Dates: start: 2017
  12. RASBURICASE [Concomitant]
     Active Substance: RASBURICASE
     Indication: PRODUCT USED FOR UNKNOWN INDICATION
     Route: 065
  13. UROMITEXAN 400 MG [Suspect]
     Active Substance: MESNA
     Dosage: 4A CYCLE OF AUGMENTED R-HYPER CVAD
     Route: 065
  14. VINCRISTINE [Suspect]
     Active Substance: VINCRISTINE
     Dosage: A1 CYCLE OF AUGMENTED R-HYPER CVAD
     Route: 065
  15. VINCRISTINE [Suspect]
     Active Substance: VINCRISTINE
     Dosage: B1 CYCLE OF AUGMENTED R-HYPER CVAD
     Route: 065
  16. ADRIAMYCIN [Suspect]
     Active Substance: DOXORUBICIN HYDROCHLORIDE
     Dosage: A1 CYCLE OF AUGMENTED R-HYPER CVAD
     Route: 065
  17. ADRIAMYCIN [Suspect]
     Active Substance: DOXORUBICIN HYDROCHLORIDE
     Dosage: 4A CYCLE OF AUGMENTED R-HYPER CVAD
     Route: 065
  18. ADRIAMYCIN [Suspect]
     Active Substance: DOXORUBICIN HYDROCHLORIDE
     Dosage: 4B CYCLE OF AUGMENTED R-HYPER CVAD
     Route: 065
     Dates: end: 20161202
  19. DEXAMETHASONE. [Suspect]
     Active Substance: DEXAMETHASONE
     Indication: MALIGNANT NEOPLASM PROGRESSION
     Dosage: B1 CYCLE OF AUGMENTED R-HYPER CVAD
     Route: 065
  20. DEXAMETHASONE. [Suspect]
     Active Substance: DEXAMETHASONE
     Dosage: 2B CYCLE OF AUGMENTED R-HYPER CVAD
     Route: 065
     Dates: start: 20160725
  21. METHOTREXATE. [Suspect]
     Active Substance: METHOTREXATE
     Dosage: 4B CYCLE OF AUGMENTED R-HYPER CVAD
     Route: 065
     Dates: end: 20161202
  22. CYTARABINE. [Suspect]
     Active Substance: CYTARABINE
     Dosage: 3B CYCLE OF AUGMENTED R-HYPER CVAD
     Route: 065
     Dates: start: 20160926
  23. SODIUM BICARBONATE. [Suspect]
     Active Substance: SODIUM BICARBONATE
     Dosage: 1B CYCLE OF AUGMENTED R-HYPER CVAD
     Route: 065
  24. TACROLIMUS. [Suspect]
     Active Substance: TACROLIMUS
     Indication: B PRECURSOR TYPE ACUTE LEUKAEMIA
     Dosage: PRE-TRANSPLANT CONDITIONING ON DAY THREE
     Route: 065
     Dates: start: 2017, end: 20170411
  25. CYCLOPHOSPHAMIDE FOR INJECTION, USP [Suspect]
     Active Substance: CYCLOPHOSPHAMIDE
     Dosage: 2A CYCLE OF AUGMENTED R-HYPER CVAD
     Route: 065
     Dates: start: 20160621
  26. CYCLOPHOSPHAMIDE FOR INJECTION, USP [Suspect]
     Active Substance: CYCLOPHOSPHAMIDE
     Dosage: 3B CYCLE OF AUGMENTED R-HYPER CVAD
     Route: 065
     Dates: start: 20160926
  27. CYCLOPHOSPHAMIDE FOR INJECTION, USP [Suspect]
     Active Substance: CYCLOPHOSPHAMIDE
     Dosage: 4A CYCLE OF AUGMENTED R-HYPER CVAD
     Route: 065
  28. RITUXIMAB. [Suspect]
     Active Substance: RITUXIMAB
     Dosage: 2B CYCLE OF AUGMENTED R-HYPER CVAD
     Route: 065
     Dates: start: 20160725
  29. RITUXIMAB. [Suspect]
     Active Substance: RITUXIMAB
     Dosage: 4A CYCLE OF AUGMENTED R-HYPER CVAD
     Route: 065
  30. VINCRISTINE [Suspect]
     Active Substance: VINCRISTINE
     Indication: B PRECURSOR TYPE ACUTE LEUKAEMIA
     Dosage: AUGMENTED R-HYPER CVAD PROTOCOL
     Route: 065
     Dates: start: 20160426
  31. VINCRISTINE [Suspect]
     Active Substance: VINCRISTINE
     Dosage: 2B CYCLE OF AUGMENTED R-HYPER CVAD
     Route: 065
     Dates: start: 20160725
  32. METHOTREXATE. [Suspect]
     Active Substance: METHOTREXATE
     Dosage: A1 CYCLE OF AUGMENTED R-HYPER CVAD
     Route: 065
  33. CYTARABINE. [Suspect]
     Active Substance: CYTARABINE
     Dosage: A1 CYCLE OF AUGMENTED R-HYPER CVAD
     Route: 065
  34. SODIUM BICARBONATE. [Suspect]
     Active Substance: SODIUM BICARBONATE
     Indication: B PRECURSOR TYPE ACUTE LEUKAEMIA
     Dosage: AUGMENTED R-HYPER CVAD PROTOCOL
     Route: 065
     Dates: start: 20160426
  35. ASPARAGINASE [Suspect]
     Active Substance: ASPARAGINASE
     Indication: B PRECURSOR TYPE ACUTE LEUKAEMIA
     Route: 065
  36. ONCOSPAR [Concomitant]
     Dosage: RESUMED AT 50% DOSE REDUCTION FOR CYCLE 4A
     Route: 065
  37. AMIODARONE [Concomitant]
     Active Substance: AMIODARONE
     Indication: PRODUCT USED FOR UNKNOWN INDICATION
     Route: 065
  38. UROMITEXAN 400 MG [Suspect]
     Active Substance: MESNA
     Dosage: 3B CYCLE OF AUGMENTED R-HYPER CVAD
     Route: 065
     Dates: start: 20160926
  39. ADRIAMYCIN [Suspect]
     Active Substance: DOXORUBICIN HYDROCHLORIDE
     Dosage: 3B CYCLE OF AUGMENTED R-HYPER CVAD
     Route: 065
  40. DEXAMETHASONE. [Suspect]
     Active Substance: DEXAMETHASONE
     Indication: ACUTE LYMPHOCYTIC LEUKAEMIA RECURRENT
     Dosage: A1 CYCLE OF AUGMENTED R-HYPER CVAD
     Route: 065
  41. DEXAMETHASONE. [Suspect]
     Active Substance: DEXAMETHASONE
     Dosage: 3B CYCLE OF AUGMENTED R-HYPER CVAD
     Route: 065
     Dates: start: 20160926
  42. DEXAMETHASONE. [Suspect]
     Active Substance: DEXAMETHASONE
     Dosage: 4B CYCLE OF AUGMENTED R-HYPER CVAD
     Route: 065
     Dates: end: 20161202
  43. METHOTREXATE. [Suspect]
     Active Substance: METHOTREXATE
     Indication: B PRECURSOR TYPE ACUTE LEUKAEMIA
     Dosage: AUGMENTED R-HYPER CVAD PROTOCOL
     Route: 065
     Dates: start: 20160426
  44. METHOTREXATE. [Suspect]
     Active Substance: METHOTREXATE
     Dosage: 3B CYCLE OF AUGMENTED R-HYPER CVAD
     Route: 065
     Dates: start: 20160926
  45. SODIUM BICARBONATE. [Suspect]
     Active Substance: SODIUM BICARBONATE
     Dosage: 2A CYCLE OF AUGMENTED R-HYPER CVAD
     Route: 065
     Dates: start: 20160621
  46. SODIUM BICARBONATE. [Suspect]
     Active Substance: SODIUM BICARBONATE
     Dosage: 2B CYCLE OF AUGMENTED R-HYPER CVAD
     Route: 065
     Dates: start: 20160725
  47. SODIUM BICARBONATE. [Suspect]
     Active Substance: SODIUM BICARBONATE
     Dosage: 3B CYCLE OF AUGMENTED R-HYPER CVAD
     Route: 065
     Dates: start: 20160926
  48. UROMITEXAN 400 MG [Suspect]
     Active Substance: MESNA
     Dosage: 2B CYCLE OF AUGMENTED R-HYPER CVAD
     Route: 065
     Dates: start: 20160725
  49. UROMITEXAN 400 MG [Suspect]
     Active Substance: MESNA
     Dosage: 3A CYCLE OF AUGMENTED R-HYPER CVAD
     Route: 065
     Dates: start: 20160822
  50. UROMITEXAN 400 MG [Suspect]
     Active Substance: MESNA
     Dosage: 4B CYCLE OF AUGMENTED R-HYPER CVAD
     Route: 065
     Dates: end: 20161202
  51. CYCLOPHOSPHAMIDE FOR INJECTION, USP [Suspect]
     Active Substance: CYCLOPHOSPHAMIDE
     Dosage: B1 CYCLE OF AUGMENTED R-HYPER CVAD
     Route: 065
  52. CYCLOPHOSPHAMIDE FOR INJECTION, USP [Suspect]
     Active Substance: CYCLOPHOSPHAMIDE
     Dosage: 1B CYCLE OF AUGMENTED R-HYPER CVAD
     Route: 065
  53. RITUXIMAB. [Suspect]
     Active Substance: RITUXIMAB
     Dosage: B1 CYCLE OF AUGMENTED R-HYPER CVAD
     Route: 065
  54. RITUXIMAB. [Suspect]
     Active Substance: RITUXIMAB
     Dosage: 3B CYCLE OF AUGMENTED R-HYPER CVAD
     Route: 065
     Dates: start: 20160926
  55. VINCRISTINE [Suspect]
     Active Substance: VINCRISTINE
     Dosage: 1B CYCLE OF AUGMENTED R-HYPER CVAD
     Route: 065
  56. VINCRISTINE [Suspect]
     Active Substance: VINCRISTINE
     Dosage: 3B CYCLE OF AUGMENTED R-HYPER CVAD
     Route: 065
     Dates: start: 20160926
  57. DEXAMETHASONE. [Suspect]
     Active Substance: DEXAMETHASONE
     Dosage: 3A CYCLE OF AUGMENTED R-HYPER CVAD
     Route: 065
     Dates: start: 20160822
  58. DEXAMETHASONE. [Suspect]
     Active Substance: DEXAMETHASONE
     Dosage: 4A CYCLE OF AUGMENTED R-HYPER CVAD
     Route: 065
  59. METHOTREXATE. [Suspect]
     Active Substance: METHOTREXATE
     Dosage: 1B CYCLE OF AUGMENTED R-HYPER CVAD
     Route: 065
  60. METHOTREXATE. [Suspect]
     Active Substance: METHOTREXATE
     Dosage: 3A CYCLE OF AUGMENTED R-HYPER CVAD
     Route: 065
     Dates: start: 20160822
  61. CYTARABINE. [Suspect]
     Active Substance: CYTARABINE
     Dosage: 1B CYCLE OF AUGMENTED R-HYPER CVAD
     Route: 065
  62. CYTARABINE. [Suspect]
     Active Substance: CYTARABINE
     Dosage: 3A CYCLE OF AUGMENTED R-HYPER CVAD
     Route: 065
     Dates: start: 20160822
  63. SODIUM BICARBONATE. [Suspect]
     Active Substance: SODIUM BICARBONATE
     Dosage: A1 CYCLE OF AUGMENTED R-HYPER CVAD
     Route: 065
  64. SODIUM BICARBONATE. [Suspect]
     Active Substance: SODIUM BICARBONATE
     Dosage: B1 CYCLE OF AUGMENTED R-HYPER CVAD
     Route: 065
  65. NEULASTA [Suspect]
     Active Substance: PEGFILGRASTIM
     Indication: PRODUCT USED FOR UNKNOWN INDICATION
     Route: 065
     Dates: start: 20161029
  66. UROMITEXAN 400 MG [Suspect]
     Active Substance: MESNA
     Dosage: A1 CYCLE OF AUGMENTED R-HYPER CVAD
     Route: 065
  67. RITUXIMAB. [Suspect]
     Active Substance: RITUXIMAB
     Indication: B PRECURSOR TYPE ACUTE LEUKAEMIA
     Dosage: AUGMENTED R-HYPER CVAD PROTOCOL
     Route: 065
     Dates: start: 20160426
  68. RITUXIMAB. [Suspect]
     Active Substance: RITUXIMAB
     Dosage: 1B CYCLE OF AUGMENTED R-HYPER CVAD
     Route: 065
  69. RITUXIMAB. [Suspect]
     Active Substance: RITUXIMAB
     Dosage: 2A CYCLE OF AUGMENTED R-HYPER CVAD
     Route: 065
     Dates: start: 20160621
  70. RITUXIMAB. [Suspect]
     Active Substance: RITUXIMAB
     Dosage: 3A CYCLE OF AUGMENTED R-HYPER CVAD
     Route: 065
     Dates: start: 20160822
  71. VINCRISTINE [Suspect]
     Active Substance: VINCRISTINE
     Dosage: 4B CYCLE OF AUGMENTED R-HYPER CVAD
     Route: 065
     Dates: end: 20161202
  72. ADRIAMYCIN [Suspect]
     Active Substance: DOXORUBICIN HYDROCHLORIDE
     Indication: B PRECURSOR TYPE ACUTE LEUKAEMIA
     Dosage: AUGMENTED R-HYPER CVAD PROTOCOL
     Route: 065
     Dates: start: 20160426
  73. ADRIAMYCIN [Suspect]
     Active Substance: DOXORUBICIN HYDROCHLORIDE
     Dosage: 1B CYCLE OF AUGMENTED R-HYPER CVAD
     Route: 065
  74. ADRIAMYCIN [Suspect]
     Active Substance: DOXORUBICIN HYDROCHLORIDE
     Dosage: 2A CYCLE OF AUGMENTED R-HYPER CVAD
     Route: 065
     Dates: start: 20160621
  75. ADRIAMYCIN [Suspect]
     Active Substance: DOXORUBICIN HYDROCHLORIDE
     Dosage: 2B CYCLE OF AUGMENTED R-HYPER CVAD
     Route: 065
     Dates: start: 20160725
  76. DEXAMETHASONE. [Suspect]
     Active Substance: DEXAMETHASONE
     Dosage: 1B CYCLE OF AUGMENTED R-HYPER CVAD
     Route: 065
  77. DEXAMETHASONE. [Suspect]
     Active Substance: DEXAMETHASONE
     Route: 065
     Dates: start: 2017
  78. CYTARABINE. [Suspect]
     Active Substance: CYTARABINE
     Dosage: 4B CYCLE OF AUGMENTED R-HYPER CVAD
     Route: 065
  79. ASPARAGINASE [Suspect]
     Active Substance: ASPARAGINASE
     Dosage: GIVEN AT HALF DOSE FOR CYCLE 4B
     Route: 065
  80. UROMITEXAN 400 MG [Suspect]
     Active Substance: MESNA
     Dosage: 1B CYCLE OF AUGMENTED R-HYPER CVAD
     Route: 065
  81. CYCLOPHOSPHAMIDE FOR INJECTION, USP [Suspect]
     Active Substance: CYCLOPHOSPHAMIDE
     Dosage: 4B CYCLE OF AUGMENTED R-HYPER CVAD
     Route: 065
     Dates: end: 20161202
  82. RITUXIMAB. [Suspect]
     Active Substance: RITUXIMAB
     Dosage: 4B CYCLE OF AUGMENTED R-HYPER CVAD
     Route: 065
     Dates: end: 20161202
  83. VINCRISTINE [Suspect]
     Active Substance: VINCRISTINE
     Dosage: 2A CYCLE OF AUGMENTED R-HYPER CVAD
     Route: 065
     Dates: start: 20160621
  84. VINCRISTINE [Suspect]
     Active Substance: VINCRISTINE
     Dosage: 3A CYCLE OF AUGMENTED R-HYPER CVAD
     Route: 065
     Dates: start: 20160822
  85. DEXAMETHASONE. [Suspect]
     Active Substance: DEXAMETHASONE
     Dosage: 2A CYCLE OF AUGMENTED R-HYPER CVAD
     Route: 065
     Dates: start: 20160621
  86. METHOTREXATE. [Suspect]
     Active Substance: METHOTREXATE
     Dosage: 2A CYCLE OF AUGMENTED R-HYPER CVAD
     Route: 065
     Dates: start: 20160621
  87. METHOTREXATE. [Suspect]
     Active Substance: METHOTREXATE
     Dosage: 2B CYCLE OF AUGMENTED R-HYPER CVAD
     Route: 065
     Dates: start: 20160725
  88. CYTARABINE. [Suspect]
     Active Substance: CYTARABINE
     Dosage: 2A CYCLE OF AUGMENTED R-HYPER CVAD
     Route: 065
     Dates: start: 20160621
  89. CYTARABINE. [Suspect]
     Active Substance: CYTARABINE
     Dosage: B1 CYCLE OF AUGMENTED R-HYPER CVAD
     Route: 065
     Dates: end: 20161202
  90. BLINATUMOMAB [Suspect]
     Active Substance: BLINATUMOMAB
     Indication: PRODUCT USED FOR UNKNOWN INDICATION
     Route: 065
     Dates: start: 20170420, end: 20170508
  91. DAPTOMYCIN. [Suspect]
     Active Substance: DAPTOMYCIN
     Indication: FEBRILE NEUTROPENIA
     Route: 065
  92. ONCOSPAR [Concomitant]
     Indication: PRODUCT USED FOR UNKNOWN INDICATION
     Route: 065
  93. DILTIAZEM. [Concomitant]
     Active Substance: DILTIAZEM
     Indication: SUPRAVENTRICULAR TACHYCARDIA
     Route: 065
  94. UROMITEXAN 400 MG [Suspect]
     Active Substance: MESNA
     Dosage: 2A CYCLE OF AUGMENTED R-HYPER CVAD
     Route: 065
     Dates: start: 20160621
  95. CYCLOPHOSPHAMIDE FOR INJECTION, USP [Suspect]
     Active Substance: CYCLOPHOSPHAMIDE
     Indication: B PRECURSOR TYPE ACUTE LEUKAEMIA
     Dosage: AUGMENTED R-HYPER CVAD PROTOCOL
     Route: 065
     Dates: start: 20160426
  96. CYCLOPHOSPHAMIDE FOR INJECTION, USP [Suspect]
     Active Substance: CYCLOPHOSPHAMIDE
     Dosage: 2B CYCLE OF AUGMENTED R-HYPER CVAD
     Route: 065
     Dates: start: 20160725
  97. CYCLOPHOSPHAMIDE FOR INJECTION, USP [Suspect]
     Active Substance: CYCLOPHOSPHAMIDE
     Dosage: 3A CYCLE OF AUGMENTED R-HYPER CVAD
     Route: 065
     Dates: start: 20160822
  98. RITUXIMAB. [Suspect]
     Active Substance: RITUXIMAB
     Dosage: A1 CYCLE OF AUGMENTED R-HYPER CVAD
     Route: 065
  99. ADRIAMYCIN [Suspect]
     Active Substance: DOXORUBICIN HYDROCHLORIDE
     Dosage: B1 CYCLE OF AUGMENTED R-HYPER CVAD
     Route: 065
  100. DEXAMETHASONE. [Suspect]
     Active Substance: DEXAMETHASONE
     Indication: B PRECURSOR TYPE ACUTE LEUKAEMIA
     Dosage: AUGMENTED R-HYPER CVAD PROTOCOL
     Route: 065
     Dates: start: 20160426
  101. CYTARABINE. [Suspect]
     Active Substance: CYTARABINE
     Indication: B PRECURSOR TYPE ACUTE LEUKAEMIA
     Dosage: AUGMENTED R-HYPER CVAD PROTOCOL
     Route: 065
     Dates: start: 20160426
  102. CYTARABINE. [Suspect]
     Active Substance: CYTARABINE
     Dosage: B1 CYCLE OF AUGMENTED R-HYPER CVAD
     Route: 065
  103. CYTARABINE. [Suspect]
     Active Substance: CYTARABINE
     Dosage: 2B CYCLE OF AUGMENTED R-HYPER CVAD
     Route: 065
     Dates: start: 20160725
  104. SODIUM BICARBONATE. [Suspect]
     Active Substance: SODIUM BICARBONATE
     Dosage: 4B CYCLE OF AUGMENTED R-HYPER CVAD
     Route: 065
     Dates: end: 20161202
  105. FLUDARABINE [Suspect]
     Active Substance: FLUDARABINE PHOSPHATE
     Indication: B PRECURSOR TYPE ACUTE LEUKAEMIA
     Dosage: PRE-TRANSPLANT CONDITIONING
     Route: 065
     Dates: start: 2017
  106. MEROPENEM. [Suspect]
     Active Substance: MEROPENEM
     Indication: FEBRILE NEUTROPENIA
     Route: 065
  107. DAPTOMYCIN. [Concomitant]
     Active Substance: DAPTOMYCIN
     Indication: PRODUCT USED FOR UNKNOWN INDICATION
     Route: 065

REACTIONS (15)
  - Leptotrichia infection [Unknown]
  - Pneumonia [Recovered/Resolved]
  - Paranasal sinus mucosal hypertrophy [Unknown]
  - Haemorrhage [Unknown]
  - Blood alkaline phosphatase increased [Recovered/Resolved]
  - Bacillus test positive [Unknown]
  - Bacteraemia [Unknown]
  - Aspartate aminotransferase increased [Recovered/Resolved]
  - Hyperlipidaemia [Unknown]
  - Malignant neoplasm progression [Unknown]
  - Acute lymphocytic leukaemia recurrent [Unknown]
  - Clostridium difficile infection [Unknown]
  - Hypertriglyceridaemia [Unknown]
  - Febrile neutropenia [Not Recovered/Not Resolved]
  - Pyrexia [Unknown]

NARRATIVE: CASE EVENT DATE: 20160427
